FAERS Safety Report 6110743-X (Version None)
Quarter: 2009Q1

REPORT INFORMATION
  Report Type: 
  Country: None (occurrence: None)
  Receive Date: 20090309
  Receipt Date: 20090224
  Transmission Date: 20090719
  Serious: Yes (Congenital Anomaly)
  Sender: FDA-Public Use
  Company Number: 201787

PATIENT
  Sex: Female

DRUGS (1)
  1. METHOTREXATE [Suspect]
     Indication: ABORTION INDUCED
     Dosage: TRANSPLACENTAL
     Route: 064

REACTIONS (7)
  - ABORTION INDUCED [None]
  - CONGENITAL TRICUSPID VALVE INCOMPETENCE [None]
  - CONGENITAL TRICUSPID VALVE STENOSIS [None]
  - HYDRONEPHROSIS [None]
  - MATERNAL DRUGS AFFECTING FOETUS [None]
  - SINGLE FUNCTIONAL KIDNEY [None]
  - VENTRICULAR SEPTAL DEFECT [None]
